FAERS Safety Report 26081906 (Version 1)
Quarter: 2025Q4

REPORT INFORMATION
  Report Type: Spontaneous
  Country: EU (occurrence: EU)
  Receive Date: 20251124
  Receipt Date: 20251124
  Transmission Date: 20260118
  Serious: Yes (Life-Threatening)
  Sender: ABBVIE
  Company Number: None

PATIENT
  Age: 52 Year
  Sex: Female

DRUGS (5)
  1. OXYBUTYNIN CHLORIDE [Suspect]
     Active Substance: OXYBUTYNIN CHLORIDE
     Indication: Micturition urgency
     Dosage: LAST ADMIN DATE: 2025
     Route: 065
     Dates: start: 20250905
  2. PANTOPRAZOLE [Suspect]
     Active Substance: PANTOPRAZOLE
     Indication: Prophylaxis
     Dosage: LAST ADMIN DATE: 2025
     Route: 048
     Dates: start: 20251010
  3. KARDEGIC [Suspect]
     Active Substance: ASPIRIN DL-LYSINE
     Indication: Stroke in evolution
     Dosage: LAST ADMIN DATE: 2025
     Route: 048
     Dates: start: 20251010
  4. KARDEGIC [Suspect]
     Active Substance: ASPIRIN DL-LYSINE
     Indication: Stroke in evolution
     Dosage: TIME INTERVAL: 1 TOTAL: LAST ADMIN DATE: 2025
     Route: 065
     Dates: start: 20251009
  5. IOMERON [Suspect]
     Active Substance: IOMEPROL
     Indication: Computerised tomogram
     Dosage: TIME INTERVAL: 1 TOTAL: LAST ADMIN DATE: 2025
     Route: 042
     Dates: start: 20251010

REACTIONS (1)
  - Toxic epidermal necrolysis [Recovering/Resolving]

NARRATIVE: CASE EVENT DATE: 20251011
